FAERS Safety Report 6942643-7 (Version None)
Quarter: 2010Q3

REPORT INFORMATION
  Report Type: 
  Country: None (occurrence: None)
  Receive Date: 20100826
  Receipt Date: 20100824
  Transmission Date: 20110219
  Serious: Yes (Death)
  Sender: FDA-Public Use
  Company Number: GB-PERRIGO-10GB012429

PATIENT
  Age: 25 Year
  Sex: Female
  Weight: 48 kg

DRUGS (9)
  1. IBUPROFEN [Suspect]
     Indication: PRODUCT USED FOR UNKNOWN INDICATION
     Dosage: UNK
     Route: 048
     Dates: start: 20081209, end: 20081209
  2. CIPRALEX [Suspect]
     Indication: ANXIETY
     Dosage: 220 MG, SINGLE
     Route: 048
     Dates: start: 20081209, end: 20081209
  3. CIPRALEX [Suspect]
     Indication: DEPRESSION
     Dosage: 10 MG, QD
     Route: 048
     Dates: start: 20081203, end: 20081209
  4. CIPRALEX [Suspect]
     Dosage: 10 MG, QD
     Route: 048
     Dates: start: 20080301, end: 20080701
  5. ALCOHOL [Suspect]
     Indication: PRODUCT USED FOR UNKNOWN INDICATION
     Dosage: UNK
     Route: 048
     Dates: start: 20081209, end: 20081209
  6. FLUOXETINE [Suspect]
     Indication: PRODUCT USED FOR UNKNOWN INDICATION
     Dosage: UNK
     Route: 048
     Dates: start: 20081209, end: 20081209
  7. NORTRIPTYLINE HCL [Suspect]
     Indication: PRODUCT USED FOR UNKNOWN INDICATION
     Dosage: UNK
     Route: 048
     Dates: start: 20081209, end: 20081209
  8. OXAZEPAM [Suspect]
     Indication: PRODUCT USED FOR UNKNOWN INDICATION
     Dosage: UNK
     Route: 048
     Dates: start: 20081209, end: 20081209
  9. TEMAZEPAM [Suspect]
     Indication: PRODUCT USED FOR UNKNOWN INDICATION
     Dosage: UNK
     Route: 048
     Dates: start: 20081209, end: 20081209

REACTIONS (1)
  - INTENTIONAL OVERDOSE [None]
